FAERS Safety Report 4973078-4 (Version None)
Quarter: 2006Q2

REPORT INFORMATION
  Report Type: 
  Country: None (occurrence: None)
  Receive Date: 20060414
  Receipt Date: 20060406
  Transmission Date: 20061013
  Serious: Yes (Other)
  Sender: FDA-Public Use
  Company Number: JP-ROCHE-443426

PATIENT
  Age: 70 Year
  Sex: Male

DRUGS (1)
  1. DENOSINE IV [Suspect]
     Indication: DRUG USE FOR UNKNOWN INDICATION
     Route: 042
     Dates: start: 20050315, end: 20050315

REACTIONS (1)
  - LIVER DISORDER [None]
